FAERS Safety Report 10903786 (Version 2)
Quarter: 2016Q3

REPORT INFORMATION
  Report Type: Spontaneous
  Country: JP (occurrence: JP)
  Receive Date: 20150311
  Receipt Date: 20160812
  Transmission Date: 20161109
  Serious: Yes (Other)
  Sender: FDA-Public Use
  Company Number: JP-ROCHE-1549904

PATIENT
  Age: 73 Year
  Sex: Male

DRUGS (6)
  1. AVASTIN [Suspect]
     Active Substance: BEVACIZUMAB
     Dosage: 6 COURSES
     Route: 041
  2. ELPLAT [Concomitant]
     Active Substance: OXALIPLATIN
     Indication: COLON CANCER
     Route: 041
     Dates: start: 2014
  3. XELODA [Suspect]
     Active Substance: CAPECITABINE
     Dosage: 6 COURSES
     Route: 048
  4. XELODA [Suspect]
     Active Substance: CAPECITABINE
     Route: 048
  5. XELODA [Suspect]
     Active Substance: CAPECITABINE
     Indication: COLON CANCER
     Route: 048
     Dates: start: 2014
  6. AVASTIN [Suspect]
     Active Substance: BEVACIZUMAB
     Indication: COLON CANCER
     Dosage: MOST RECENT DOSE RECEIVED ON 20/JAN/2015
     Route: 041
     Dates: start: 20140115, end: 20150120

REACTIONS (2)
  - Neuropathy peripheral [Unknown]
  - Portal vein thrombosis [Recovered/Resolved]

NARRATIVE: CASE EVENT DATE: 20140723
